FAERS Safety Report 5736790-5 (Version None)
Quarter: 2008Q2

REPORT INFORMATION
  Report Type: 
  Country: None (occurrence: None)
  Receive Date: 20080509
  Receipt Date: 20080425
  Transmission Date: 20081010
  Serious: Yes (Hospitalization)
  Sender: FDA-Public Use
  Company Number: 20080114

PATIENT
  Age: 89 Year
  Sex: Male
  Weight: 81.65 kg

DRUGS (1)
  1. AMINOPHYLLIN [Suspect]
     Indication: THERAPEUTIC PROCEDURE
     Dosage: 100 MG/ONCE, INTRAVENOUS
     Route: 042
     Dates: start: 20080423, end: 20080423

REACTIONS (1)
  - TREMOR [None]
